FAERS Safety Report 4682686-X (Version None)
Quarter: 2005Q2

REPORT INFORMATION
  Report Type: 
  Country: None (occurrence: None)
  Receive Date: 20050606
  Receipt Date: 20050531
  Transmission Date: 20051028
  Serious: Yes (Hospitalization)
  Sender: FDA-Public Use
  Company Number: 2005JP001084

PATIENT
  Age: 20 Year
  Sex: Male

DRUGS (6)
  1. CEFAZOLIN [Suspect]
     Indication: NASOPHARYNGITIS
     Route: 042
     Dates: end: 20050509
  2. GASTER [Suspect]
     Indication: DRUG USE FOR UNKNOWN INDICATION
     Route: 048
     Dates: end: 20050509
  3. PIPERACILLIN [Concomitant]
     Dates: end: 20050509
  4. BUSCOPAN [Concomitant]
     Dates: end: 20050509
  5. MEROPEN [Concomitant]
     Route: 042
     Dates: end: 20050509
  6. CEFMETAZON [Concomitant]
     Route: 042
     Dates: end: 20050509

REACTIONS (1)
  - EOSINOPHILIC MYOCARDITIS [None]
